FAERS Safety Report 5255893-5 (Version None)
Quarter: 2007Q1

REPORT INFORMATION
  Report Type: 
  Country: None (occurrence: None)
  Receive Date: 20070301
  Receipt Date: 20070221
  Transmission Date: 20070707
  Serious: Yes (Hospitalization)
  Sender: FDA-Public Use
  Company Number: 2007BI002227

PATIENT
  Age: 54 Year
  Sex: Female
  Weight: 103.4201 kg

DRUGS (11)
  1. AVONEX [Suspect]
     Indication: MULTIPLE SCLEROSIS
     Dosage: 30 UG; QW; IM
     Route: 030
     Dates: start: 20030201, end: 20050101
  2. AVONEX [Suspect]
     Indication: MULTIPLE SCLEROSIS
     Dosage: 30 UG; QW; IM
     Route: 030
     Dates: start: 20050101
  3. TYLENOL [Concomitant]
     Indication: MULTIPLE SCLEROSIS
     Dosage: 30 UG; QW; IM
     Route: 030
     Dates: start: 20030201, end: 20050101
  4. NITROGLYCERIN [Concomitant]
  5. TOPAMAX [Concomitant]
  6. ZANTAC [Concomitant]
  7. CELECOXIB [Concomitant]
  8. NSAIDS [Concomitant]
  9. LYRICA [Concomitant]
  10. TRAMADOL HCL [Concomitant]
  11. VITAMIN E [Concomitant]

REACTIONS (2)
  - KNEE ARTHROPLASTY [None]
  - OSTEOARTHRITIS [None]
